FAERS Safety Report 8543472-3 (Version None)
Quarter: 2012Q3

REPORT INFORMATION
  Report Type: 
  Country: None (occurrence: None)
  Receive Date: 20120727
  Receipt Date: 20120723
  Transmission Date: 20120928
  Serious: Yes (Other)
  Sender: FDA-Public Use
  Company Number: PHHY2012ES048924

PATIENT
  Age: 67 Year
  Sex: Female

DRUGS (3)
  1. ALENDRONATE SODIUM [Suspect]
     Route: 048
  2. ZOLEDRONOC ACID [Suspect]
     Indication: METASTASES TO BONE
     Route: 042
  3. LETROZOLE [Concomitant]
     Indication: BREAST CANCER STAGE IV

REACTIONS (3)
  - INFLAMMATION [None]
  - OSTEONECROSIS OF JAW [None]
  - DENTAL FISTULA [None]
